FAERS Safety Report 4676533-X (Version None)
Quarter: 2005Q2

REPORT INFORMATION
  Report Type: 
  Country: None (occurrence: None)
  Receive Date: 20050526
  Receipt Date: 20050526
  Transmission Date: 20051028
  Serious: No
  Sender: FDA-Public Use
  Company Number: None

PATIENT
  Age: 28 Year
  Sex: Female

DRUGS (3)
  1. DOLASETRON [Suspect]
     Dosage: 12.5 MG IV
     Route: 042
  2. TOBRAMYCIN [Concomitant]
  3. AZITHROMYCIN [Concomitant]

REACTIONS (1)
  - DYSTONIA [None]
